FAERS Safety Report 7941597-4 (Version None)
Quarter: 2011Q4

REPORT INFORMATION
  Report Type: 
  Country: None (occurrence: None)
  Receive Date: 20111122
  Receipt Date: 20111122
  Transmission Date: 20120403
  Serious: Yes (Hospitalization)
  Sender: FDA-Public Use
  Company Number: None

PATIENT
  Sex: Female
  Weight: 17.8 kg

DRUGS (5)
  1. CYTARABINE [Suspect]
  2. ELSPAR [Suspect]
  3. ELSPAR [Suspect]
  4. CYTARABINE [Suspect]
     Dosage: 9120 MG
  5. ELSPAR [Suspect]
     Dosage: 9240 MG

REACTIONS (24)
  - PYREXIA [None]
  - ABDOMINAL PAIN [None]
  - SEPTIC SHOCK [None]
  - SYSTEMIC INFLAMMATORY RESPONSE SYNDROME [None]
  - HYPOPERFUSION [None]
  - NEUROLOGICAL DECOMPENSATION [None]
  - CEREBRAL INFARCTION [None]
  - RENAL INFARCT [None]
  - LUNG DISORDER [None]
  - COAGULOPATHY [None]
  - STAPHYLOCOCCUS TEST POSITIVE [None]
  - PLEURAL EFFUSION [None]
  - ABDOMINAL DISTENSION [None]
  - CONTINUOUS HAEMODIAFILTRATION [None]
  - RENAL FAILURE [None]
  - BRONCHIAL OBSTRUCTION [None]
  - PULMONARY INFARCTION [None]
  - CARDIOVASCULAR DISORDER [None]
  - RESPIRATORY DISORDER [None]
  - PATHOGEN RESISTANCE [None]
  - CENTRAL NERVOUS SYSTEM LESION [None]
  - ENCEPHALITIS [None]
  - ASPERGILLOSIS [None]
  - LOBAR PNEUMONIA [None]
